FAERS Safety Report 5745501-9 (Version None)
Quarter: 2008Q2

REPORT INFORMATION
  Report Type: 
  Country: None (occurrence: None)
  Receive Date: 20080521
  Receipt Date: 20080509
  Transmission Date: 20081010
  Serious: Yes (Hospitalization)
  Sender: FDA-Public Use
  Company Number: DE-ELI_LILLY_AND_COMPANY-DE200803001124

PATIENT
  Sex: Male

DRUGS (6)
  1. STRATTERA [Suspect]
     Indication: ATTENTION DEFICIT/HYPERACTIVITY DISORDER
     Dosage: 36 MG, DAILY (1/D)
     Route: 048
     Dates: start: 20060101, end: 20080101
  2. STRATTERA [Suspect]
     Dosage: 28 MG, UNKNOWN
     Route: 048
     Dates: start: 20080318, end: 20080101
  3. STRATTERA [Suspect]
     Dosage: 20 MG, UNKNOWN
     Route: 048
     Dates: start: 20080320, end: 20080101
  4. STRATTERA [Suspect]
     Dosage: 25 MG, UNKNOWN
     Route: 048
     Dates: start: 20080414
  5. VIANI [Concomitant]
     Indication: ASTHMA
     Dosage: UNK, AS NEEDED
     Route: 065
  6. MEDIKINET [Concomitant]
     Dosage: 5 MG, UNKNOWN
     Route: 065
     Dates: start: 20080318

REACTIONS (2)
  - INFLUENZA [None]
  - TACHYCARDIA [None]
